FAERS Safety Report 9702706 (Version 1)
Quarter: 2013Q4

REPORT INFORMATION
  Report Type: Spontaneous
  Country: AR (occurrence: None)
  Receive Date: 20131120
  Receipt Date: 20131120
  Transmission Date: 20140711
  Serious: Yes (Other)
  Sender: FDA-Public Use
  Company Number: VAL_02823_2013

PATIENT
  Sex: Female

DRUGS (2)
  1. PARLODEL [Suspect]
     Indication: MUSCULOSKELETAL STIFFNESS
     Dosage: 2 DF, 2 DF, DAILY ORAL
     Route: 048
     Dates: start: 2005, end: 200804
  2. PARLODEL [Suspect]
     Indication: MUSCLE RIGIDITY
     Dosage: 2 DF, 2 DF, DAILY ORAL
     Route: 048
     Dates: start: 2005, end: 200804

REACTIONS (2)
  - Fall [None]
  - Drug ineffective [None]
